FAERS Safety Report 16875847 (Version 1)
Quarter: 2019Q4

REPORT INFORMATION
  Report Type: Spontaneous
  Country: US (occurrence: US)
  Receive Date: 20191002
  Receipt Date: 20191002
  Transmission Date: 20200122
  Serious: No
  Sender: FDA-Public Use
  Company Number: US-GW PHARMA-201908USGW3061

PATIENT

DRUGS (9)
  1. EPIDIOLEX [Suspect]
     Active Substance: CANNABIDIOL
     Dosage: 9.92 MG/KG, 360 MILLIGRAM, BID
     Route: 048
     Dates: start: 201902, end: 20190716
  2. ONFI [Concomitant]
     Active Substance: CLOBAZAM
     Indication: PRODUCT USED FOR UNKNOWN INDICATION
     Dosage: 5 MILLIGRAM, BID
     Route: 065
  3. DEPAKOTE [Concomitant]
     Active Substance: DIVALPROEX SODIUM
     Indication: PRODUCT USED FOR UNKNOWN INDICATION
     Dosage: 500 MILLIGRAM, QD (1 TABLET EVERY MORNING)
     Route: 065
  4. DEPAKOTE [Concomitant]
     Active Substance: DIVALPROEX SODIUM
     Indication: PRODUCT USED FOR UNKNOWN INDICATION
     Dosage: 250 MILLIGRAM, QD (2 CAPSULES AT BEDTIME)
     Route: 065
  5. EPIDIOLEX [Suspect]
     Active Substance: CANNABIDIOL
     Dosage: 4.13 MG/KG, 150 MILLIGRAM, BID
     Route: 048
     Dates: start: 20190919
  6. EPIDIOLEX [Suspect]
     Active Substance: CANNABIDIOL
     Dosage: 3.31 MG/KG, 120 MILLIGRAM, BID
     Route: 048
     Dates: start: 201907, end: 20190918
  7. LAMICTAL [Concomitant]
     Active Substance: LAMOTRIGINE
     Indication: PRODUCT USED FOR UNKNOWN INDICATION
     Dosage: 300 MILLIGRAM, QD (1 TABLET EVERY MORNING)
     Route: 065
  8. EPIDIOLEX [Suspect]
     Active Substance: CANNABIDIOL
     Indication: LENNOX-GASTAUT SYNDROME
     Dosage: 4.96 MG/KG, 180 MILLIGRAM, BID
     Route: 048
     Dates: start: 20190214, end: 201902
  9. ONFI [Concomitant]
     Active Substance: CLOBAZAM
     Dosage: 3.125 MILLIGRAM, QD (0.5 ML IN MORNING AND 0.75 ML IN EVENING)
     Route: 065

REACTIONS (1)
  - Transaminases increased [Recovered/Resolved]

NARRATIVE: CASE EVENT DATE: 20190712
